FAERS Safety Report 6714585-3 (Version None)
Quarter: 2010Q2

REPORT INFORMATION
  Report Type: 
  Country: None (occurrence: None)
  Receive Date: 20100507
  Receipt Date: 20100505
  Transmission Date: 20101027
  Serious: Yes (Hospitalization)
  Sender: FDA-Public Use
  Company Number: US-BIOGENIDEC-2010BI014612

PATIENT
  Age: 49 Year
  Sex: Female
  Weight: 58 kg

DRUGS (7)
  1. TYSABRI [Suspect]
     Indication: MULTIPLE SCLEROSIS
     Route: 042
     Dates: start: 20090518
  2. ADDERALL 30 [Concomitant]
     Indication: FATIGUE
     Route: 048
     Dates: start: 20080427
  3. BACLOFEN [Concomitant]
     Indication: MUSCLE SPASMS
     Route: 048
     Dates: start: 20090429
  4. LISINOPRIL [Concomitant]
     Indication: HYPERTENSION
     Route: 048
     Dates: start: 20040101
  5. MOBIC [Concomitant]
     Indication: ARTHRALGIA
     Dates: start: 20091110
  6. PROZAC [Concomitant]
     Indication: DEPRESSION
     Route: 048
     Dates: start: 20060129
  7. SYNTHROID [Concomitant]
     Indication: HYPOTHYROIDISM
     Route: 048
     Dates: start: 20060920

REACTIONS (9)
  - APPENDICITIS PERFORATED [None]
  - CROHN'S DISEASE [None]
  - DIARRHOEA [None]
  - ESCHERICHIA INFECTION [None]
  - HAEMATOCRIT DECREASED [None]
  - HAEMATOCRIT INCREASED [None]
  - HAEMOGLOBIN DECREASED [None]
  - HAEMOGLOBIN INCREASED [None]
  - PERITONITIS BACTERIAL [None]
